FAERS Safety Report 20359333 (Version 2)
Quarter: 2022Q1

REPORT INFORMATION
  Report Type: Spontaneous
  Country: US (occurrence: US)
  Receive Date: 20220121
  Receipt Date: 20220217
  Transmission Date: 20220423
  Serious: No
  Sender: FDA-Public Use
  Company Number: US-BIOVITRUM-2022US00868

PATIENT
  Sex: Female

DRUGS (3)
  1. SYNAGIS [Suspect]
     Active Substance: PALIVIZUMAB
     Indication: Premature baby
     Route: 030
     Dates: start: 202111
  2. SYNAGIS [Suspect]
     Active Substance: PALIVIZUMAB
     Dates: start: 20211221
  3. SYNAGIS [Suspect]
     Active Substance: PALIVIZUMAB
     Dates: start: 20211123

REACTIONS (4)
  - Vomiting [Unknown]
  - Irritability [Unknown]
  - Hypersensitivity [Unknown]
  - Product dose omission issue [Unknown]
